FAERS Safety Report 14694489 (Version 1)
Quarter: 2018Q1

REPORT INFORMATION
  Report Type: Spontaneous
  Country: BR (occurrence: BR)
  Receive Date: 20180329
  Receipt Date: 20180329
  Transmission Date: 20180509
  Serious: Yes (Hospitalization)
  Sender: FDA-Public Use
  Company Number: BR-PFIZER INC-2018125340

PATIENT
  Age: 84 Year
  Sex: Female

DRUGS (1)
  1. MINIDIAB [Suspect]
     Active Substance: GLIPIZIDE
     Dosage: 3 DF, DAILY

REACTIONS (3)
  - Blood glucose decreased [Unknown]
  - Feeding disorder [Unknown]
  - Chronic obstructive pulmonary disease [Unknown]

NARRATIVE: CASE EVENT DATE: 201704
